FAERS Safety Report 12541634 (Version 1)
Quarter: 2016Q3

REPORT INFORMATION
  Report Type: Spontaneous
  Country: ZA (occurrence: ZA)
  Receive Date: 20160708
  Receipt Date: 20160708
  Transmission Date: 20161109
  Serious: Yes (Death)
  Sender: FDA-Public Use
  Company Number: ZA-ASTELLAS-2016US026178

PATIENT

DRUGS (1)
  1. MYCAMINE [Suspect]
     Active Substance: MICAFUNGIN SODIUM
     Indication: PRODUCT USED FOR UNKNOWN INDICATION
     Dosage: 100 MG (3 DOSES), UNKNOWN FREQ.
     Route: 042
     Dates: end: 20160630

REACTIONS (1)
  - Death [Fatal]

NARRATIVE: CASE EVENT DATE: 20160706
